FAERS Safety Report 8849206 (Version 3)
Quarter: 2013Q4

REPORT INFORMATION
  Report Type: Spontaneous
  Country: US (occurrence: None)
  Receive Date: 20120426
  Receipt Date: 20131226
  Transmission Date: 20140711
  Serious: Yes (Other)
  Sender: FDA-Public Use
  Company Number: PHEH2011US010872

PATIENT
  Age: 31 Year
  Sex: Female
  Weight: 62.6 kg

DRUGS (2)
  1. GILENYA [Suspect]
     Indication: MULTIPLE SCLEROSIS
     Route: 048
     Dates: start: 20110901
  2. INFLUENZA VACCINE [Suspect]

REACTIONS (5)
  - Ear pain [None]
  - Oropharyngeal pain [None]
  - Inappropriate schedule of drug administration [None]
  - Nasopharyngitis [None]
  - Productive cough [None]
